FAERS Safety Report 16923674 (Version 1)
Quarter: 2019Q4

REPORT INFORMATION
  Report Type: Spontaneous
  Country: TW (occurrence: TW)
  Receive Date: 20191016
  Receipt Date: 20191016
  Transmission Date: 20200122
  Serious: Yes (Death)
  Sender: FDA-Public Use
  Company Number: TW-ROCHE-2434568

PATIENT
  Age: 73 Year
  Sex: Female
  Weight: 54 kg

DRUGS (3)
  1. PREDNISOLONE. [Concomitant]
     Active Substance: PREDNISOLONE
     Route: 048
     Dates: start: 20170803, end: 201909
  2. MABTHERA [Suspect]
     Active Substance: RITUXIMAB
     Indication: RHEUMATOID ARTHRITIS
     Dosage: TWO 1000MG DOSES EVERY SIX MONTHS
     Route: 042
     Dates: start: 20120301, end: 20190606
  3. CATILON [Concomitant]
     Route: 048
     Dates: start: 20170803, end: 201909

REACTIONS (5)
  - Gastrointestinal stromal tumour [Fatal]
  - Pyrexia [Fatal]
  - Nausea [Fatal]
  - Vomiting [Fatal]
  - Decreased appetite [Fatal]

NARRATIVE: CASE EVENT DATE: 201906
